FAERS Safety Report 7280519-9 (Version None)
Quarter: 2011Q1

REPORT INFORMATION
  Report Type: 
  Country: None (occurrence: None)
  Receive Date: 20110208
  Receipt Date: 20110128
  Transmission Date: 20110831
  Serious: Yes (Other)
  Sender: FDA-Public Use
  Company Number: BR-SANOFI-AVENTIS-2011SA005759

PATIENT
  Age: 51 Year
  Sex: Male

DRUGS (3)
  1. PRIMAQUINE [Suspect]
     Route: 048
     Dates: start: 20040722, end: 20040728
  2. CHLOROQUINE PHOSPHATE [Suspect]
     Route: 048
     Dates: start: 20040722, end: 20040722
  3. CHLOROQUINE PHOSPHATE [Suspect]
     Route: 048
     Dates: start: 20040723, end: 20040724

REACTIONS (2)
  - MALARIA [None]
  - UNDERDOSE [None]
